FAERS Safety Report 6330752-5 (Version None)
Quarter: 2009Q3

REPORT INFORMATION
  Report Type: 
  Country: None (occurrence: None)
  Receive Date: 20090827
  Receipt Date: 20090826
  Transmission Date: 20100115
  Serious: Yes (Hospitalization, Other)
  Sender: FDA-Public Use
  Company Number: US-PFIZER INC-2009233296

PATIENT
  Sex: Female

DRUGS (2)
  1. SOLU-MEDROL [Suspect]
  2. COPAXONE [Suspect]
     Indication: MULTIPLE SCLEROSIS
     Dosage: 20 MG, UNK
     Route: 058
     Dates: start: 20050410

REACTIONS (2)
  - HALLUCINATION [None]
  - MULTIPLE SCLEROSIS RELAPSE [None]
